FAERS Safety Report 8373147-5 (Version None)
Quarter: 2012Q2

REPORT INFORMATION
  Report Type: 
  Country: None (occurrence: None)
  Receive Date: 20120521
  Receipt Date: 20120515
  Transmission Date: 20120825
  Serious: Yes (Other)
  Sender: FDA-Public Use
  Company Number: US-BAYER-2011-090307

PATIENT
  Age: 23 Year
  Sex: Female
  Weight: 82 kg

DRUGS (1)
  1. YAZ [Suspect]
     Indication: CONTRACEPTION
     Dosage: UNK
     Dates: start: 20050201, end: 20090301

REACTIONS (2)
  - EMOTIONAL DISTRESS [None]
  - BILIARY COLIC [None]
